FAERS Safety Report 7681009-1 (Version None)
Quarter: 2011Q3

REPORT INFORMATION
  Report Type: 
  Country: None (occurrence: None)
  Receive Date: 20110812
  Receipt Date: 20110801
  Transmission Date: 20111222
  Serious: Yes (Hospitalization)
  Sender: FDA-Public Use
  Company Number: CA-SANOFI-AVENTIS-2011SA044395

PATIENT
  Age: 74 Year
  Sex: Male
  Weight: 102 kg

DRUGS (8)
  1. DRONEDARONE HCL [Suspect]
     Indication: ATRIAL FIBRILLATION
     Route: 048
     Dates: start: 20101221
  2. CANDESARTAN CILEXETIL [Concomitant]
     Route: 065
  3. METOPROLOL TARTRATE [Concomitant]
     Route: 065
     Dates: start: 20110421
  4. WARFARIN SODIUM [Concomitant]
     Indication: THROMBOSIS
     Route: 065
  5. ATORVASTATIN [Concomitant]
     Route: 065
  6. METOPROLOL TARTRATE [Concomitant]
     Indication: HEART RATE ABNORMAL
     Route: 065
  7. THIAZIDES [Concomitant]
     Indication: HYPERTENSION
     Route: 065
  8. ASPIRIN [Concomitant]
     Indication: THROMBOSIS
     Route: 065

REACTIONS (1)
  - CARDIAC FAILURE [None]
